FAERS Safety Report 14108639 (Version 3)
Quarter: 2022Q1

REPORT INFORMATION
  Report Type: Spontaneous
  Country: IE (occurrence: IE)
  Receive Date: 20171019
  Receipt Date: 20220207
  Transmission Date: 20220424
  Serious: Yes (Death, Other)
  Sender: FDA-Public Use
  Company Number: IE-FERRINGPH-2017FE04924

PATIENT
  Age: 79 Year
  Sex: Male

DRUGS (1)
  1. NORDURINE [Suspect]
     Active Substance: DESMOPRESSIN ACETATE
     Indication: Nocturia
     Dosage: 0.2 MG, ONCE/SINGLE AT NIGHT
     Route: 048

REACTIONS (9)
  - Death [Fatal]
  - Hypertension [Recovered/Resolved]
  - Dizziness [Unknown]
  - Vertigo [Unknown]
  - Vertigo [Unknown]
  - Hyponatraemic syndrome [Recovered/Resolved]
  - Gait disturbance [Unknown]
  - Off label use [Unknown]
  - Product use issue [Unknown]

NARRATIVE: CASE EVENT DATE: 20170101
